FAERS Safety Report 7427897-5 (Version None)
Quarter: 2011Q2

REPORT INFORMATION
  Report Type: 
  Country: None (occurrence: None)
  Receive Date: 20110418
  Receipt Date: 20110418
  Transmission Date: 20111010
  Serious: Yes (Death, Life-Threatening, Hospitalization, Disabling, Congenital Anomaly, Other)
  Sender: FDA-Public Use
  Company Number: None

PATIENT
  Age: 2 Year
  Sex: Male
  Weight: 17.6903 kg

DRUGS (1)
  1. FLUOCINONIDE .05% TARO [Suspect]
     Dosage: TWICE DAILY

REACTIONS (6)
  - EYE SWELLING [None]
  - COUGH [None]
  - IMMUNE SYSTEM DISORDER [None]
  - RHINORRHOEA [None]
  - PURULENT DISCHARGE [None]
  - PYREXIA [None]
